FAERS Safety Report 4524693-3 (Version None)
Quarter: 2004Q4

REPORT INFORMATION
  Report Type: 
  Country: None (occurrence: None)
  Receive Date: 20041211
  Receipt Date: 20041022
  Transmission Date: 20050328
  Serious: Yes (Death, Hospitalization, Other)
  Sender: FDA-Public Use
  Company Number: US-MERCK-0410USA03589

PATIENT
  Age: 73 Year
  Sex: Female

DRUGS (17)
  1. VIOXX [Suspect]
     Indication: BACK PAIN
     Route: 048
     Dates: start: 20021118, end: 20040527
  2. VIOXX [Suspect]
     Indication: ARTHRITIS
     Route: 048
     Dates: start: 20021118, end: 20040527
  3. DEPO-ESTRADIOL [Concomitant]
     Route: 030
  4. AMBIEN [Concomitant]
     Route: 065
  5. VERAPAMIL MSD LP [Concomitant]
     Route: 065
  6. DETROL [Concomitant]
     Route: 065
  7. PROZAC [Concomitant]
     Route: 065
  8. HYDROCHLOROTHIAZIDE [Concomitant]
     Route: 065
  9. ZOCOR [Concomitant]
     Route: 065
  10. AGYRAX (MECLIZINE HYDROCHLORIDE) [Concomitant]
     Route: 065
  11. PAXIL [Concomitant]
     Route: 065
  12. POTASSIUM CHLORIDE [Concomitant]
     Route: 048
  13. CALCIUM CARBONATE [Concomitant]
     Route: 065
  14. ASCORBIC ACID [Concomitant]
     Route: 065
  15. TERAZOSIN HYDROCHLORIDE [Concomitant]
     Route: 065
  16. TRAZODONE HYDROCHLORIDE [Concomitant]
     Route: 065
  17. PNEUMOVAX (PNEUMOCOCCAL 14V POLYSACCHARIDE VACCINE) [Concomitant]
     Route: 065

REACTIONS (35)
  - ADVERSE EVENT [None]
  - ANAEMIA [None]
  - ANOREXIA [None]
  - ASTHENIA [None]
  - BLOOD PRESSURE INCREASED [None]
  - CARDIAC FAILURE CONGESTIVE [None]
  - CARDIOVASCULAR DISORDER [None]
  - CAROTID ARTERY ATHEROMA [None]
  - CHRONIC OBSTRUCTIVE AIRWAYS DISEASE [None]
  - CONFUSIONAL STATE [None]
  - CONTUSION [None]
  - COUGH [None]
  - DECUBITUS ULCER [None]
  - DEMENTIA [None]
  - DEPRESSION [None]
  - DISORIENTATION [None]
  - DIVERTICULITIS [None]
  - DIZZINESS [None]
  - FALL [None]
  - GASTROENTERITIS [None]
  - HAND FRACTURE [None]
  - MEMORY IMPAIRMENT [None]
  - NAUSEA [None]
  - OEDEMA PERIPHERAL [None]
  - OPEN WOUND [None]
  - OSTEOPOROSIS [None]
  - PHARYNGOLARYNGEAL PAIN [None]
  - PYREXIA [None]
  - RHINORRHOEA [None]
  - SINUS CONGESTION [None]
  - SKIN DISORDER [None]
  - SLEEP DISORDER [None]
  - STOMACH DISCOMFORT [None]
  - URINARY TRACT INFECTION [None]
  - VOMITING [None]
